FAERS Safety Report 25359777 (Version 1)
Quarter: 2025Q2

REPORT INFORMATION
  Report Type: Spontaneous
  Country: HU (occurrence: HU)
  Receive Date: 20250526
  Receipt Date: 20250526
  Transmission Date: 20250717
  Serious: Yes (Hospitalization)
  Sender: NOVARTIS
  Company Number: HU-002147023-NVSC2025HU083279

PATIENT
  Age: 19 Month
  Sex: Male
  Weight: 10 kg

DRUGS (2)
  1. TAFINLAR [Suspect]
     Active Substance: DABRAFENIB MESYLATE
     Indication: Glioma
     Dosage: 0.35 MG, QD, (DISPERSIBLE TABLET)
     Route: 048
     Dates: start: 20240404, end: 20250515
  2. MEKINIST [Suspect]
     Active Substance: TRAMETINIB DIMETHYL SULFOXIDE
     Indication: Glioma
     Dosage: 0.35 MG, QD, (DISPERSIBLE TABLET)
     Route: 048
     Dates: start: 20240404, end: 20250515

REACTIONS (3)
  - Tremor [Not Recovered/Not Resolved]
  - Fatigue [Not Recovered/Not Resolved]
  - Nystagmus [Not Recovered/Not Resolved]
